FAERS Safety Report 5096591-0 (Version None)
Quarter: 2006Q3

REPORT INFORMATION
  Report Type: 
  Country: None (occurrence: None)
  Receive Date: 20060830
  Receipt Date: 20060814
  Transmission Date: 20061208
  Serious: Yes (Other)
  Sender: FDA-Public Use
  Company Number: 112138ISR

PATIENT
  Age: 38 Year
  Sex: Male

DRUGS (3)
  1. CITALOPRAM HYDROBROMIDE [Suspect]
     Indication: DEPRESSION
     Dosage: ORAL
     Route: 048
     Dates: start: 20051114, end: 20060701
  2. CLONAZEPAM [Concomitant]
  3. DIHYDROCODEINE [Concomitant]

REACTIONS (2)
  - CONDITION AGGRAVATED [None]
  - QUADRIPLEGIA [None]
